FAERS Safety Report 19470218 (Version 1)
Quarter: 2021Q2

REPORT INFORMATION
  Report Type: Spontaneous
  Country: US (occurrence: US)
  Receive Date: 20210628
  Receipt Date: 20210628
  Transmission Date: 20210717
  Serious: Yes (Other)
  Sender: FDA-Public Use
  Company Number: NVSC2021US139680

PATIENT
  Age: 50 Year
  Sex: Male

DRUGS (1)
  1. FINGOLIMOD. [Suspect]
     Active Substance: FINGOLIMOD
     Indication: MULTIPLE SCLEROSIS RELAPSE
     Dosage: UNK
     Route: 065

REACTIONS (6)
  - Meningitis cryptococcal [Unknown]
  - Mental disorder [Not Recovered/Not Resolved]
  - Pyrexia [Unknown]
  - Intracranial pressure increased [Unknown]
  - Confusional state [Unknown]
  - Headache [Unknown]
